FAERS Safety Report 7488950-3 (Version None)
Quarter: 2011Q2

REPORT INFORMATION
  Report Type: 
  Country: None (occurrence: None)
  Receive Date: 20110518
  Receipt Date: 20110506
  Transmission Date: 20111010
  Serious: Yes (Hospitalization)
  Sender: FDA-Public Use
  Company Number: DE-UCBSA-032352

PATIENT
  Sex: Male
  Weight: 81 kg

DRUGS (3)
  1. VIMPAT [Suspect]
     Indication: EPILEPSY
     Dates: start: 20100929, end: 20101005
  2. TIMOX [Concomitant]
     Indication: EPILEPSY
     Dates: start: 20100818
  3. VIMPAT [Suspect]
     Dates: start: 20101006

REACTIONS (2)
  - PNEUMONIA [None]
  - PLEURAL EFFUSION [None]
